FAERS Safety Report 9042647 (Version 1)
Quarter: 2013Q1

REPORT INFORMATION
  Report Type: Report from Study
  Country: US (occurrence: US)
  Receive Date: 20130129
  Receipt Date: 20130129
  Transmission Date: 20140127
  Serious: No
  Sender: FDA-Public Use
  Company Number: US-ABBOTT-12P-163-0906046-00

PATIENT
  Age: 47 Year
  Sex: Male

DRUGS (6)
  1. HUMIRA 40 MG/0.8 ML PEN [Suspect]
     Indication: ANKYLOSING SPONDYLITIS
     Dates: start: 20111120
  2. ATENOLOL [Concomitant]
     Indication: PALPITATIONS
     Dosage: EVERY DAY
  3. ATENOLOL [Concomitant]
     Indication: HYPERTENSION
  4. COLCHICINE [Concomitant]
     Indication: FAMILIAL MEDITERRANEAN FEVER
  5. PREDNISONE [Concomitant]
     Indication: EYE INFLAMMATION
     Dosage: EYE DROPS AS NEEDED
  6. HYDROCODONE W/IBUPROFEN [Concomitant]
     Indication: PRODUCT USED FOR UNKNOWN INDICATION

REACTIONS (5)
  - Oropharyngeal pain [Not Recovered/Not Resolved]
  - Body temperature increased [Not Recovered/Not Resolved]
  - Nasal congestion [Not Recovered/Not Resolved]
  - Lacrimation increased [Not Recovered/Not Resolved]
  - Cough [Not Recovered/Not Resolved]
